FAERS Safety Report 9746919 (Version 1)
Quarter: 2013Q4

REPORT INFORMATION
  Report Type: Report from Study
  Country: US (occurrence: US)
  Receive Date: 20131211
  Receipt Date: 20131211
  Transmission Date: 20140711
  Serious: Yes (Hospitalization)
  Sender: FDA-Public Use
  Company Number: US-TEVA-449631USA

PATIENT
  Age: 73 Year
  Sex: Male

DRUGS (21)
  1. DOXORUBICIN [Suspect]
     Indication: DIFFUSE LARGE B-CELL LYMPHOMA
     Dosage: 4.7619 MILLIGRAM DAILY; MOST RECENT DOSE PRIOR TO EVENT 24-JUL-2013
     Route: 042
     Dates: start: 20130403
  2. VINCRISTINE [Suspect]
     Indication: DIFFUSE LARGE B-CELL LYMPHOMA
     Dosage: .0952 MILLIGRAM DAILY; MOST RECENT DOSE PRIOR TO EVENT ON 05/JUN/2013,
     Route: 042
     Dates: start: 20130403
  3. OBINUTUZUMAB [Suspect]
     Dosage: 47.619 MILLIGRAM DAILY; LAST DOSE PRIOR TO EVENT:4-SEP-2013
     Route: 042
     Dates: start: 20130404
  4. PREDNISONE [Suspect]
     Dosage: 4.7619 MILLIGRAM DAILY; LAST DOSE PRIOR TO EVENT: 29-JUL-2013
     Route: 042
     Dates: start: 20130403
  5. CYCLOPHOSPHAMIDE [Suspect]
     Indication: DIFFUSE LARGE B-CELL LYMPHOMA
     Dosage: 70.9524 MILLIGRAM DAILY; LAST DOSE PRIOR TO EVENT ON 24-JUL-2013
     Route: 042
     Dates: start: 20130403
  6. LOSARTAN [Concomitant]
     Indication: HYPERTENSION
     Dates: start: 201212
  7. TOPAMAX [Concomitant]
     Indication: MIGRAINE WITH AURA
     Dates: start: 2003
  8. TUMS- CALCIUM CARBONATE [Concomitant]
     Indication: GASTROOESOPHAGEAL REFLUX DISEASE
     Dates: start: 2003
  9. VALTREX [Concomitant]
     Indication: ORAL HERPES
     Dates: start: 2006
  10. VIT B12-CYANOCOBALAMIN [Concomitant]
     Dates: start: 2006
  11. VITAMIN C - ASCORBIC ACID [Concomitant]
     Dates: start: 1990
  12. VITAMIN D3 [Concomitant]
     Dates: start: 2004
  13. TYLENOL [Concomitant]
     Indication: PAIN
     Dates: start: 20130410
  14. VICODIN [Concomitant]
     Indication: PAIN
     Dates: start: 201210
  15. VICODIN [Concomitant]
     Indication: COUGH
  16. PROCHLORPERAZINE [Concomitant]
     Indication: HICCUPS
     Dates: start: 20130412
  17. IMODIUM [Concomitant]
     Indication: DIARRHOEA
     Dates: start: 20130426
  18. TRUBIOTICS: BIFIDOBACTERIUM, LACTOBACILUS, ACIDOPHILUS [Concomitant]
     Indication: DIARRHOEA
     Dates: start: 20130817
  19. FOLIC ACID [Concomitant]
     Dates: start: 2003
  20. LEVOTHYROXINE [Concomitant]
     Dates: start: 1999
  21. LIPITOR [Concomitant]
     Dates: start: 1995

REACTIONS (1)
  - Respiratory distress [Recovered/Resolved]
